FAERS Safety Report 11965512 (Version 1)
Quarter: 2016Q1

REPORT INFORMATION
  Report Type: Spontaneous
  Country: US (occurrence: None)
  Receive Date: 20160122
  Receipt Date: 20160122
  Transmission Date: 20160526
  Serious: No
  Sender: FDA-Public Use
  Company Number: None

PATIENT
  Age: 69 Year
  Sex: Male
  Weight: 79.38 kg

DRUGS (4)
  1. LANTUS [Concomitant]
     Active Substance: INSULIN GLARGINE
  2. LISINIPRIL [Concomitant]
  3. GLYBIPRIDE [Concomitant]
  4. INVOKANA [Suspect]
     Active Substance: CANAGLIFLOZIN
     Indication: DIABETES MELLITUS
     Dosage: 30 1- DAY
     Route: 048
     Dates: start: 201511, end: 20160107

REACTIONS (2)
  - Mouth swelling [None]
  - Lip exfoliation [None]

NARRATIVE: CASE EVENT DATE: 201512
